FAERS Safety Report 8104563-4 (Version None)
Quarter: 2012Q1

REPORT INFORMATION
  Report Type: 
  Country: None (occurrence: None)
  Receive Date: 20120201
  Receipt Date: 20120127
  Transmission Date: 20120608
  Serious: Yes (Hospitalization)
  Sender: FDA-Public Use
  Company Number: FR-MERCK-1110FRA00083

PATIENT
  Age: 50 Year
  Sex: Male

DRUGS (13)
  1. MYCOPHENOLATE MOFETIL [Concomitant]
     Route: 065
  2. RILMENIDINE [Suspect]
     Route: 048
     Dates: end: 20110809
  3. ALLOPURINOL [Suspect]
     Route: 048
     Dates: end: 20110809
  4. JANUVIA [Suspect]
     Route: 048
     Dates: end: 20110809
  5. OXYCODONE HCL [Suspect]
     Route: 065
     Dates: start: 20110713, end: 20110809
  6. REPAGLINIDE [Suspect]
     Route: 048
     Dates: start: 20110819
  7. TACROLIMUS [Concomitant]
     Route: 065
  8. LERCANIDIPINE HYDROCHLORIDE [Suspect]
     Route: 048
     Dates: end: 20110809
  9. REPAGLINIDE [Suspect]
     Route: 048
     Dates: end: 20110809
  10. BETAXOLOL HCL [Suspect]
     Route: 048
     Dates: end: 20110809
  11. PREDNISONE [Concomitant]
     Route: 065
  12. VASERETIC [Suspect]
     Route: 048
     Dates: end: 20110809
  13. ATORVASTATIN CALCIUM [Suspect]
     Route: 048
     Dates: end: 20110809

REACTIONS (5)
  - INTESTINAL OBSTRUCTION [None]
  - DEHYDRATION [None]
  - PANCREATIC ENZYMES INCREASED [None]
  - UNDERDOSE [None]
  - RENAL FAILURE [None]
